FAERS Safety Report 10307934 (Version 1)
Quarter: 2014Q3

REPORT INFORMATION
  Report Type: Spontaneous
  Country: US (occurrence: None)
  Receive Date: 20140711
  Receipt Date: 20140711
  Transmission Date: 20150326
  Serious: Yes (Hospitalization)
  Sender: FDA-Public Use
  Company Number: 140188-1

PATIENT
  Age: 73 Year
  Sex: Male

DRUGS (2)
  1. HYPERTENSION MEDICATION [Concomitant]
     Active Substance: UNSPECIFIED INGREDIENT
  2. SUPREP BOWEL PREP [Suspect]
     Active Substance: MAGNESIUM SULFATE\POTASSIUM SULFATE\SODIUM SULFATE
     Indication: COLONOSCOPY
     Dosage: 2 X 6OZ BOTTLE 1X PO
     Route: 048
     Dates: start: 20140518, end: 20140519

REACTIONS (19)
  - Infection [None]
  - Cerebrovascular accident [None]
  - Blood creatinine increased [None]
  - Memory impairment [None]
  - Atrial fibrillation [None]
  - Movement disorder [None]
  - Hypertension [None]
  - Hypotension [None]
  - Back disorder [None]
  - Abdominal distension [None]
  - Dehydration [None]
  - White blood cell count increased [None]
  - Stress [None]
  - Electrolyte imbalance [None]
  - Blood urea increased [None]
  - Blood sodium decreased [None]
  - Convulsion [None]
  - Condition aggravated [None]
  - Metabolic encephalopathy [None]

NARRATIVE: CASE EVENT DATE: 20140521
